FAERS Safety Report 5606147-6 (Version None)
Quarter: 2008Q1

REPORT INFORMATION
  Report Type: 
  Country: None (occurrence: None)
  Receive Date: 20080129
  Receipt Date: 20061204
  Transmission Date: 20080703
  Serious: No
  Sender: FDA-Public Use
  Company Number: A0630229A

PATIENT
  Sex: Female

DRUGS (2)
  1. WELLBUTRIN [Suspect]
     Indication: DEPRESSION
     Dosage: 100MG PER DAY
     Route: 048
     Dates: start: 20060201
  2. NO CONCURRENT MEDICATION [Concomitant]

REACTIONS (1)
  - TINNITUS [None]
